FAERS Safety Report 15608471 (Version 1)
Quarter: 2018Q4

REPORT INFORMATION
  Report Type: Spontaneous
  Country: NO (occurrence: NO)
  Receive Date: 20181112
  Receipt Date: 20181112
  Transmission Date: 20190205
  Serious: Yes (Other)
  Sender: FDA-Public Use
  Company Number: NO-BAYER-2018-187626

PATIENT
  Sex: Male

DRUGS (3)
  1. XOFIGO [Suspect]
     Active Substance: RADIUM RA-223 DICHLORIDE
     Dosage: 5.64 MBQ, UNK
     Dates: start: 20180906, end: 20180906
  2. XOFIGO [Suspect]
     Active Substance: RADIUM RA-223 DICHLORIDE
     Dosage: UNK
     Dates: start: 20181004, end: 20181004
  3. XOFIGO [Suspect]
     Active Substance: RADIUM RA-223 DICHLORIDE
     Dosage: 1.58 MBQ, UNK
     Route: 042
     Dates: start: 20180809, end: 20180809

REACTIONS (6)
  - Haemoglobin decreased [None]
  - Drug intolerance [None]
  - Bone marrow disorder [None]
  - Platelet count decreased [None]
  - Anaemia [None]
  - Metastases to bone [None]
